FAERS Safety Report 4761527-6 (Version None)
Quarter: 2005Q3

REPORT INFORMATION
  Report Type: 
  Country: None (occurrence: None)
  Receive Date: 20050906
  Receipt Date: 20050804
  Transmission Date: 20060218
  Serious: Yes (Other)
  Sender: FDA-Public Use
  Company Number: 2005AP04272

PATIENT
  Age: 18139 Day
  Sex: Male

DRUGS (5)
  1. CRESTOR [Suspect]
     Route: 048
     Dates: start: 20050217, end: 20050730
  2. DORMICUM [Suspect]
     Indication: INSOMNIA
     Dates: start: 20050720
  3. IMOVANE [Concomitant]
     Indication: INSOMNIA
     Dates: start: 19980101
  4. DOMPERIDONE [Concomitant]
     Indication: IRRITABLE BOWEL SYNDROME
     Dates: start: 20050714
  5. ZELMAC [Concomitant]
     Indication: IRRITABLE BOWEL SYNDROME
     Dates: start: 20050714

REACTIONS (8)
  - BLOOD CHOLESTEROL INCREASED [None]
  - DECREASED APPETITE [None]
  - GALLBLADDER DISORDER [None]
  - GALLBLADDER POLYP [None]
  - HEPATIC STEATOSIS [None]
  - JAUNDICE [None]
  - NAUSEA [None]
  - WEIGHT DECREASED [None]
